FAERS Safety Report 7076280-3 (Version None)
Quarter: 2010Q4

REPORT INFORMATION
  Report Type: 
  Country: None (occurrence: None)
  Receive Date: 20101101
  Receipt Date: 20101019
  Transmission Date: 20110411
  Serious: Yes (Hospitalization)
  Sender: FDA-Public Use
  Company Number: IT-RANBAXY-2010R1-39034

PATIENT

DRUGS (1)
  1. PARACETAMOL [Suspect]
     Dosage: UNK
     Route: 065

REACTIONS (1)
  - ANAPHYLACTIC SHOCK [None]
